FAERS Safety Report 6987815 (Version 2)
Quarter: 2019Q2

REPORT INFORMATION
  Report Type: Spontaneous
  Country: SE (occurrence: SE)
  Receive Date: 20090506
  Receipt Date: 20190405
  Transmission Date: 20190711
  Serious: Yes (Hospitalization)
  Sender: FDA-Public Use
  Company Number: US-ASTRAZENECA-2009SE01676

PATIENT
  Age: 33785 Day
  Sex: Female

DRUGS (11)
  1. LACTULOSE. [Concomitant]
     Active Substance: LACTULOSE
  2. DEXTROPROPOXYPHENE NAPSILATE [Concomitant]
     Active Substance: PROPOXYPHENE HYDROCHLORIDE
  3. TROMBYL [Suspect]
     Active Substance: ASPIRIN
     Route: 048
     Dates: end: 200902
  4. OMEPRAZOL [Concomitant]
     Active Substance: OMEPRAZOLE
     Route: 048
  5. ISOPHANE INSULIN [Concomitant]
     Active Substance: INSULIN NOS
  6. NOVOMIX [Concomitant]
     Active Substance: INSULIN ASPART
  7. IMDUR-SLOW RELEASE [Concomitant]
     Route: 048
  8. IMODIUM [Concomitant]
     Active Substance: LOPERAMIDE HYDROCHLORIDE
     Route: 048
  9. PANODIL [Concomitant]
     Active Substance: ACETAMINOPHEN
     Route: 048
  10. ATENOLOL. [Suspect]
     Active Substance: ATENOLOL
     Indication: ATRIAL FIBRILLATION
     Route: 048
     Dates: end: 200902
  11. PROPAVAN [Concomitant]
     Active Substance: PROPIOMAZINE
     Route: 048

REACTIONS (2)
  - Bradycardia [Recovered/Resolved]
  - Epistaxis [Recovered/Resolved]

NARRATIVE: CASE EVENT DATE: 20090206
